FAERS Safety Report 5400725-5 (Version None)
Quarter: 2007Q3

REPORT INFORMATION
  Report Type: 
  Country: None (occurrence: None)
  Receive Date: 20070730
  Receipt Date: 20070718
  Transmission Date: 20080115
  Serious: Yes (Hospitalization)
  Sender: FDA-Public Use
  Company Number: US-PFIZER INC-2007051989

PATIENT
  Age: 80 Year
  Sex: Male

DRUGS (8)
  1. SU-011,248 [Suspect]
     Indication: RENAL CELL CARCINOMA STAGE UNSPECIFIED
     Route: 048
     Dates: start: 20070329, end: 20070424
  2. ASPIRIN [Concomitant]
     Dosage: TEXT:1 TABLET-FREQ:DAILY
     Route: 048
  3. CENTRUM SILVER [Concomitant]
     Dosage: TEXT:1-FREQ:DAILY
     Route: 048
  4. PACERONE [Concomitant]
     Dosage: TEXT:1 TABLET-FREQ:DAILY
  5. SENNA [Concomitant]
     Dosage: TEXT:1-FREQ:DAILY
     Route: 048
  6. PROTONIX [Concomitant]
     Route: 048
  7. PYRIDOXINE HYDROCHLORIDE [Concomitant]
     Route: 048
  8. VITAMIN B-12 [Concomitant]

REACTIONS (7)
  - ASTHENIA [None]
  - DEHYDRATION [None]
  - HAEMATOCRIT DECREASED [None]
  - HAEMOGLOBIN DECREASED [None]
  - MUCOSAL INFLAMMATION [None]
  - THROMBOCYTOPENIA [None]
  - WHITE BLOOD CELL COUNT DECREASED [None]
